FAERS Safety Report 8152029-8 (Version None)
Quarter: 2012Q1

REPORT INFORMATION
  Report Type: 
  Country: None (occurrence: None)
  Receive Date: 20120214
  Receipt Date: 20120201
  Transmission Date: 20120608
  Serious: Yes (Other)
  Sender: FDA-Public Use
  Company Number: 1000028167

PATIENT
  Age: 65 Year
  Sex: Female
  Weight: 60 kg

DRUGS (6)
  1. NEXIUM [Concomitant]
  2. CRESTOR [Concomitant]
  3. ESCITALOPRAM [Suspect]
     Indication: DEPRESSION
     Dosage: 10 MG (10 MG, 1 IN 1 D), ORAL
     Route: 048
     Dates: start: 20110621, end: 20110701
  4. STILNOX (ZOLPIDEM TARTRATE) (ZOLPIDEM TARTRATE) [Concomitant]
  5. LEXOMIL (BROMAZEPAM) (BROMAZEPAM) [Concomitant]
  6. OESTROGEL (ESTRADIOL) (ESTRADIOL) [Concomitant]

REACTIONS (5)
  - FEELING ABNORMAL [None]
  - CHILLS [None]
  - DRY MOUTH [None]
  - VISION BLURRED [None]
  - NAUSEA [None]
